FAERS Safety Report 26130822 (Version 1)
Quarter: 2025Q4

REPORT INFORMATION
  Report Type: Spontaneous
  Country: US (occurrence: US)
  Receive Date: 20251208
  Receipt Date: 20251208
  Transmission Date: 20260119
  Serious: Yes (Hospitalization)
  Sender: MYLAN
  Company Number: US-MYLANLABS-2025M1104377

PATIENT
  Age: 66 Year
  Sex: Female

DRUGS (3)
  1. CLOZAPINE [Suspect]
     Active Substance: CLOZAPINE
     Indication: Schizoaffective disorder
     Dosage: 200 MILLIGRAM
  2. CLOZAPINE [Suspect]
     Active Substance: CLOZAPINE
     Dosage: 100 MILLIGRAM, TAPERED
  3. CLOZAPINE [Suspect]
     Active Substance: CLOZAPINE
     Dosage: UNK,  INITIALLY DISCONTINUED THEN RESTARTED

REACTIONS (5)
  - Rebound effect [Recovered/Resolved]
  - Tardive dyskinesia [Recovered/Resolved]
  - Dyspnoea [Recovering/Resolving]
  - Speech disorder [Recovering/Resolving]
  - Eating disorder [Recovering/Resolving]
